FAERS Safety Report 9596191 (Version 1)
Quarter: 2013Q4

REPORT INFORMATION
  Report Type: Spontaneous
  Country: US (occurrence: US)
  Receive Date: 20131004
  Receipt Date: 20131004
  Transmission Date: 20140711
  Serious: No
  Sender: FDA-Public Use
  Company Number: US-AMGEN-USASP2012066865

PATIENT
  Age: 33 Year
  Sex: Male
  Weight: 130 kg

DRUGS (4)
  1. ENBREL [Suspect]
     Indication: PSORIASIS
     Dosage: 50 MG, QWK
     Route: 058
  2. PAXIL [Concomitant]
     Dosage: 10 MG, UNK
  3. DOXYCYCLINE [Concomitant]
     Dosage: 150 MG, UNK
  4. ALCLOMETASONE [Concomitant]
     Dosage: 0.05 %, UNK

REACTIONS (1)
  - Psoriasis [Unknown]
